FAERS Safety Report 17721759 (Version 1)
Quarter: 2020Q2

REPORT INFORMATION
  Report Type: Spontaneous
  Country: JP (occurrence: JP)
  Receive Date: 20200429
  Receipt Date: 20200429
  Transmission Date: 20200714
  Serious: Yes (Hospitalization, Other)
  Sender: FDA-Public Use
  Company Number: JP-009507513-2004JPN007768

PATIENT
  Age: 25 Year
  Sex: Female
  Weight: 53 kg

DRUGS (6)
  1. LAMOTRIGINE. [Suspect]
     Active Substance: LAMOTRIGINE
     Indication: DEPRESSION
     Dosage: 25 MILLIGRAM, QOD
     Route: 048
     Dates: start: 20130227, end: 20130321
  2. RIVOTRIL [Suspect]
     Active Substance: CLONAZEPAM
     Indication: PROPHYLAXIS
     Dosage: 0.5 MILLIGRAM, QD
     Route: 048
     Dates: start: 20130208, end: 20130321
  3. LIMAS [Suspect]
     Active Substance: LITHIUM CARBONATE
     Indication: BIPOLAR DISORDER
     Dosage: 600 MILLIGRAM, QD
     Route: 048
     Dates: start: 20130215
  4. ZYPREXA [Suspect]
     Active Substance: OLANZAPINE
     Indication: SEDATION
     Dosage: 5 MILLIGRAM, QD
     Route: 048
     Dates: start: 20130208
  5. REMERON [Suspect]
     Active Substance: MIRTAZAPINE
     Dosage: 15 MILLIGRAM, QD
     Route: 048
     Dates: start: 20130208, end: 20130321
  6. MAGLAX (MAGNESIUM OXIDE) [Suspect]
     Active Substance: MAGNESIUM OXIDE
     Indication: CONSTIPATION
     Dosage: 1320 MILLIGRAM, QD
     Route: 048
     Dates: start: 20130215

REACTIONS (8)
  - Drug eruption [Unknown]
  - Rash [Not Recovered/Not Resolved]
  - Hyperthermia [Recovered/Resolved]
  - Pain [Unknown]
  - Drug reaction with eosinophilia and systemic symptoms [Unknown]
  - Pyrexia [Recovered/Resolved]
  - Pyrexia [Recovered/Resolved]
  - Herpes zoster [Unknown]

NARRATIVE: CASE EVENT DATE: 2013
